FAERS Safety Report 6582067-8 (Version None)
Quarter: 2010Q1

REPORT INFORMATION
  Report Type: 
  Country: None (occurrence: None)
  Receive Date: 20100215
  Receipt Date: 20100203
  Transmission Date: 20100710
  Serious: Yes (Other)
  Sender: FDA-Public Use
  Company Number: US-ELI_LILLY_AND_COMPANY-US200912004703

PATIENT
  Sex: Female
  Weight: 95.238 kg

DRUGS (8)
  1. BYETTA [Suspect]
     Indication: TYPE 2 DIABETES MELLITUS
     Dosage: 5 UG, 2/D
     Route: 058
     Dates: start: 20050101, end: 20050101
  2. BYETTA [Suspect]
     Dosage: 10 UG, 2/D
     Route: 058
     Dates: start: 20050101
  3. BYETTA [Suspect]
     Dosage: 10 UG, 2/D
     Route: 058
     Dates: start: 20080101, end: 20091218
  4. NPH INSULIN [Concomitant]
     Indication: TYPE 2 DIABETES MELLITUS
  5. AMARYL [Concomitant]
  6. DIOVAN [Concomitant]
  7. METFORMIN [Concomitant]
  8. CRESTOR [Concomitant]

REACTIONS (3)
  - BREAST CANCER STAGE II [None]
  - OFF LABEL USE [None]
  - PAPILLOMA [None]
